FAERS Safety Report 9789157 (Version 2)
Quarter: 2014Q1

REPORT INFORMATION
  Report Type: Spontaneous
  Country: US (occurrence: US)
  Receive Date: 20131230
  Receipt Date: 20140326
  Transmission Date: 20141002
  Serious: No
  Sender: FDA-Public Use
  Company Number: US-009507513-1312USA009826

PATIENT
  Age: 9 Year
  Sex: Female
  Weight: 31.75 kg

DRUGS (1)
  1. MIRALAX [Suspect]
     Indication: CONSTIPATION
     Dosage: UNK, UNKNOWN
     Route: 048
     Dates: start: 2012

REACTIONS (4)
  - Drug administered to patient of inappropriate age [Unknown]
  - Off label use [Unknown]
  - Product odour abnormal [Unknown]
  - Product taste abnormal [Unknown]
